FAERS Safety Report 22095615 (Version 2)
Quarter: 2023Q1

REPORT INFORMATION
  Report Type: Report from Study
  Country: IT (occurrence: IT)
  Receive Date: 20230314
  Receipt Date: 20230315
  Transmission Date: 20230417
  Serious: Yes (Other)
  Sender: FDA-Public Use
  Company Number: None

PATIENT
  Age: 67 Year
  Sex: Male
  Weight: 80 kg

DRUGS (1)
  1. RUXIENCE [Suspect]
     Active Substance: RITUXIMAB-PVVR
     Indication: Warm autoimmune haemolytic anaemia
     Dosage: FOURTH WEEKLY DOSE
     Route: 042
     Dates: start: 20230301, end: 20230301

REACTIONS (7)
  - Oxygen saturation decreased [Unknown]
  - Hypotension [Unknown]
  - Malaise [Unknown]
  - Somnolence [Unknown]
  - Syncope [Unknown]
  - Dyspnoea [Unknown]
  - Off label use [Unknown]

NARRATIVE: CASE EVENT DATE: 20230301
